FAERS Safety Report 16965682 (Version 1)
Quarter: 2019Q4

REPORT INFORMATION
  Report Type: Spontaneous
  Country: US (occurrence: US)
  Receive Date: 20191027
  Receipt Date: 20191027
  Transmission Date: 20200122
  Serious: Yes (Life-Threatening, Disabling, Other)
  Sender: FDA-Public Use
  Company Number: None

PATIENT
  Age: 58 Year
  Sex: Male
  Weight: 81 kg

DRUGS (20)
  1. NORCO [Concomitant]
     Active Substance: ACETAMINOPHEN\HYDROCODONE BITARTRATE
  2. GARLIC. [Concomitant]
     Active Substance: GARLIC
  3. QAMLODIPINE [Concomitant]
  4. VITAMIN B COMPLEX [Concomitant]
     Active Substance: CYANOCOBALAMIN\DEXPANTHENOL\NIACINAMIDE\PYRIDOXINE HYDROCHLORIDE\RIBOFLAVIN 5^-PHOSPHATE SODIUM\THIAMINE HYDROCHLORIDE\VITAMIN B COMPLEX
  5. BARELEANS STOMACH REPAIR [Concomitant]
  6. VELCADE WITH DEXAMETHASONE [Concomitant]
  7. DULOXETINE. [Concomitant]
     Active Substance: DULOXETINE
  8. COENZYME Q10 [Concomitant]
     Active Substance: UBIDECARENONE
  9. MAGNESIA [Concomitant]
     Active Substance: MAGNESIUM HYDROXIDE
  10. RANITIDINE. [Suspect]
     Active Substance: RANITIDINE
     Indication: GASTROOESOPHAGEAL REFLUX DISEASE
     Dosage: ?          OTHER STRENGTH:EXTRA STRENGTH;?
     Route: 048
     Dates: start: 20091001, end: 20190601
  11. REVLIMID [Concomitant]
     Active Substance: LENALIDOMIDE
  12. ERERGEN-C [Concomitant]
  13. FISH OIL [Concomitant]
     Active Substance: FISH OIL
  14. TURMERIC [Concomitant]
     Active Substance: HERBALS\TURMERIC
  15. CHLORTHALIDONE. [Concomitant]
     Active Substance: CHLORTHALIDONE
  16. POTASSIUM [Concomitant]
     Active Substance: POTASSIUM
  17. SUPERFOODS ORGANIC CLEAN ENERGY POWDER [Concomitant]
  18. KYO-GREEN POWDER [Concomitant]
  19. VITAMIN D3 [Concomitant]
     Active Substance: CHOLECALCIFEROL
  20. BARLEANS DIGESTIVE SEED BLEND [Concomitant]

REACTIONS (2)
  - Plasma cell myeloma [None]
  - Suspected product contamination [None]

NARRATIVE: CASE EVENT DATE: 20190926
